FAERS Safety Report 13149639 (Version 1)
Quarter: 2017Q1

REPORT INFORMATION
  Report Type: Spontaneous
  Country: US (occurrence: US)
  Receive Date: 20170125
  Receipt Date: 20170125
  Transmission Date: 20170428
  Serious: Yes (Hospitalization)
  Sender: FDA-Public Use
  Company Number: US-WEST-WARD PHARMACEUTICALS CORP.-US-H14001-17-00102

PATIENT
  Age: 43 Year
  Sex: Male

DRUGS (2)
  1. BUPRENORPHINE. [Suspect]
     Active Substance: BUPRENORPHINE
     Route: 065
  2. BUPRENORPHINE. [Suspect]
     Active Substance: BUPRENORPHINE
     Indication: DRUG DEPENDENCE
     Route: 059

REACTIONS (8)
  - Aspergillus infection [None]
  - Staphylococcal infection [None]
  - Wound infection fungal [Recovering/Resolving]
  - Candida test positive [None]
  - Injection site nodule [Recovering/Resolving]
  - Product preparation error [Unknown]
  - Product contamination [None]
  - Drug abuse [Unknown]
